FAERS Safety Report 9306874 (Version 1)
Quarter: 2013Q1

REPORT INFORMATION
  Report Type: Spontaneous
  Country: DE (occurrence: None)
  Receive Date: 20130319
  Receipt Date: 20130319
  Transmission Date: 20140127
  Serious: Yes (Other)
  Sender: FDA-Public Use
  Company Number: 219788

PATIENT
  Age: 50 Year
  Sex: Female
  Weight: 65 kg

DRUGS (1)
  1. DAIVOBET [Suspect]
     Indication: NAIL PSORIASIS
     Dosage: ON THE HEAD
     Dates: start: 20121030, end: 20121127

REACTIONS (6)
  - Eyelid oedema [None]
  - Sense of oppression [None]
  - Nausea [None]
  - Dyspnoea [None]
  - Pharyngeal oedema [None]
  - Hypersensitivity [None]
